FAERS Safety Report 4778684-8 (Version None)
Quarter: 2005Q3

REPORT INFORMATION
  Report Type: 
  Country: None (occurrence: None)
  Receive Date: 20050922
  Receipt Date: 20050920
  Transmission Date: 20060218
  Serious: Yes (Disabling)
  Sender: FDA-Public Use
  Company Number: TCI2005A03443

PATIENT
  Age: 32 Year
  Sex: Female

DRUGS (12)
  1. LEUPROLIDE ACETATE [Suspect]
     Indication: ADENOMYOSIS
     Dosage: 1.88 MG (1.88 MG, 1 IN28D) SUBCUTANEOUS
     Route: 058
     Dates: start: 20010213, end: 20010413
  2. LEUPROLIDE ACETATE [Suspect]
     Indication: ENDOMETRIOSIS
     Dosage: 1.88 MG (1.88 MG, 1 IN28D) SUBCUTANEOUS
     Route: 058
     Dates: start: 20010213, end: 20010413
  3. LEUPROLIDE ACETATE [Suspect]
     Indication: UTERINE LEIOMYOMA
     Dosage: 1.88 MG (1.88 MG, 1 IN28D) SUBCUTANEOUS
     Route: 058
     Dates: start: 20010213, end: 20010413
  4. LEUPROLIDE ACETATE [Suspect]
     Indication: ADENOMYOSIS
     Dosage: 1.88 MG (1.88 MG, 1 IN28D) SUBCUTANEOUS
     Route: 058
     Dates: start: 20020412, end: 20031118
  5. LEUPROLIDE ACETATE [Suspect]
     Indication: ENDOMETRIOSIS
     Dosage: 1.88 MG (1.88 MG, 1 IN28D) SUBCUTANEOUS
     Route: 058
     Dates: start: 20020412, end: 20031118
  6. LEUPROLIDE ACETATE [Suspect]
     Indication: UTERINE LEIOMYOMA
     Dosage: 1.88 MG (1.88 MG, 1 IN28D) SUBCUTANEOUS
     Route: 058
     Dates: start: 20020412, end: 20031118
  7. LEUPROLIDE ACETATE [Suspect]
     Indication: ADENOMYOSIS
     Dosage: 1.88 MG (1.88 MG, 1 IN28D) SUBCUTANEOUS
     Route: 058
     Dates: start: 20030704, end: 20031118
  8. LEUPROLIDE ACETATE [Suspect]
     Indication: ENDOMETRIOSIS
     Dosage: 1.88 MG (1.88 MG, 1 IN28D) SUBCUTANEOUS
     Route: 058
     Dates: start: 20030704, end: 20031118
  9. LEUPROLIDE ACETATE [Suspect]
     Indication: UTERINE LEIOMYOMA
     Dosage: 1.88 MG (1.88 MG, 1 IN28D) SUBCUTANEOUS
     Route: 058
     Dates: start: 20030704, end: 20031118
  10. LEUPROLIDE ACETATE [Suspect]
     Indication: ADENOMYOSIS
     Dosage: 1.88 MG (1.88 MG, 1 IN28D) SUBCUTANEOUS
     Route: 058
     Dates: start: 20050531, end: 20050629
  11. LEUPROLIDE ACETATE [Suspect]
     Indication: ENDOMETRIOSIS
     Dosage: 1.88 MG (1.88 MG, 1 IN28D) SUBCUTANEOUS
     Route: 058
     Dates: start: 20050531, end: 20050629
  12. LEUPROLIDE ACETATE [Suspect]
     Indication: UTERINE LEIOMYOMA
     Dosage: 1.88 MG (1.88 MG, 1 IN28D) SUBCUTANEOUS
     Route: 058
     Dates: start: 20050531, end: 20050629

REACTIONS (4)
  - DRUG EXPOSURE DURING PREGNANCY [None]
  - HYPERTHYROIDISM [None]
  - PREGNANCY [None]
  - WEIGHT DECREASED [None]
